FAERS Safety Report 24404995 (Version 1)
Quarter: 2024Q4

REPORT INFORMATION
  Report Type: Spontaneous
  Country: US (occurrence: None)
  Receive Date: 20241004
  Receipt Date: 20241004
  Transmission Date: 20250114
  Serious: No
  Sender: Public
  Company Number: None

PATIENT
  Age: 58 Year
  Sex: Male

DRUGS (1)
  1. WARFARIN SODIUM [Suspect]
     Active Substance: WARFARIN SODIUM
     Indication: Pulmonary embolism
     Dosage: FREQUENCY : DAILY;?
     Route: 048

REACTIONS (3)
  - Fistula [None]
  - International normalised ratio increased [None]
  - Haemorrhage [None]

NARRATIVE: CASE EVENT DATE: 20240531
